FAERS Safety Report 4440239-2 (Version None)
Quarter: 2004Q3

REPORT INFORMATION
  Report Type: 
  Country: None (occurrence: None)
  Receive Date: 20040903
  Receipt Date: 20031125
  Transmission Date: 20050211
  Serious: No
  Sender: FDA-Public Use
  Company Number: US-GLAXOSMITHKLINE-A0441514A

PATIENT
  Age: 57 Year
  Sex: Female

DRUGS (2)
  1. ALBENZA [Suspect]
     Indication: ECHINOCOCCIASIS
     Dosage: 200MG TWICE PER DAY
     Route: 048
     Dates: start: 20030201
  2. FOSAMAX [Suspect]
     Indication: ILL-DEFINED DISORDER
     Dosage: 70MG WEEKLY
     Route: 065
     Dates: start: 20031001

REACTIONS (3)
  - DRUG INTERACTION [None]
  - HEADACHE [None]
  - LIVER FUNCTION TEST ABNORMAL [None]
